FAERS Safety Report 10231868 (Version 1)
Quarter: 2014Q2

REPORT INFORMATION
  Report Type: Spontaneous
  Country: NL (occurrence: NL)
  Receive Date: 20140612
  Receipt Date: 20140612
  Transmission Date: 20141212
  Serious: Yes (Life-Threatening, Other)
  Sender: FDA-Public Use
  Company Number: NL-009507513-1406NLD004756

PATIENT
  Age: 74 Year
  Sex: Female

DRUGS (3)
  1. SYNAPAUSE-E3 [Suspect]
     Indication: PRODUCT USED FOR UNKNOWN INDICATION
     Dosage: DOSERING ONBEKEND
     Route: 067
  2. PROTOPIC [Suspect]
     Indication: VULVAL DISORDER
     Dosage: 1MG/G, APPLY THINLY TWICE A DAY
     Route: 003
     Dates: start: 20130313
  3. DERMOVATE [Concomitant]
     Indication: VULVAL DISORDER
     Dosage: DOSERING ONBEKEND
     Route: 003

REACTIONS (1)
  - Neoplasm malignant [Not Recovered/Not Resolved]
